FAERS Safety Report 5801328-0 (Version None)
Quarter: 2008Q3

REPORT INFORMATION
  Report Type: 
  Country: None (occurrence: None)
  Receive Date: 20080707
  Receipt Date: 20080623
  Transmission Date: 20090109
  Serious: Yes (Hospitalization)
  Sender: FDA-Public Use
  Company Number: JP-JNJFOC-20080501737

PATIENT
  Sex: Female
  Weight: 45 kg

DRUGS (7)
  1. ITRACONAZOLE [Suspect]
     Indication: DRUG USE FOR UNKNOWN INDICATION
     Route: 041
  2. ITRACONAZOLE [Suspect]
     Route: 048
  3. URSO 250 [Concomitant]
     Indication: PROPHYLAXIS
     Route: 048
  4. FAMOTIDINE [Concomitant]
     Indication: PROPHYLAXIS AGAINST GASTROINTESTINAL ULCER
     Route: 048
  5. BAKTAR [Concomitant]
     Indication: ANTIBIOTIC PROPHYLAXIS
     Route: 048
  6. SOLITA-T NO 3 [Concomitant]
     Route: 041
  7. BFLUID [Concomitant]
     Route: 041

REACTIONS (1)
  - PERICARDITIS [None]
